FAERS Safety Report 24782998 (Version 1)
Quarter: 2024Q4

REPORT INFORMATION
  Report Type: Spontaneous
  Country: IL (occurrence: IL)
  Receive Date: 20241227
  Receipt Date: 20241227
  Transmission Date: 20250115
  Serious: Yes (Other)
  Sender: ASTELLAS
  Company Number: IL-ASTELLAS-2024-AER-025949

PATIENT
  Age: 46 Year
  Sex: Male

DRUGS (6)
  1. ZOLBETUXIMAB [Suspect]
     Active Substance: ZOLBETUXIMAB
     Indication: Gastric cancer stage IV
     Dosage: 1600MG=99.36%=794.88MG/M2?ADMINISTRATION VIA FILTER 0.2 MICRONE
     Route: 042
     Dates: start: 20241216
  2. SODIUM CHLORIDE [Concomitant]
     Active Substance: SODIUM CHLORIDE
     Indication: Product used for unknown indication
     Dosage: 1600 MG ZOLBETUXIMAB IN SODIUM CHLORIDE 0.9% 500 ML BAG NON PVC IV
     Route: 042
     Dates: start: 20241216
  3. SODIUM CHLORIDE [Concomitant]
     Active Substance: SODIUM CHLORIDE
     Dosage: 12MG DEXAMETHASONE IN 100 ML SODIUM CHLORIDE 0.9% IV
     Route: 042
     Dates: start: 20241216
  4. NETUPITANT\PALONOSETRON [Concomitant]
     Active Substance: NETUPITANT\PALONOSETRON
     Indication: Product used for unknown indication
     Dosage: 1X1 UNITS; 1 HOUR BEFORE TREATMENT
     Route: 048
     Dates: start: 20241216
  5. DEXAMETHASONE [Concomitant]
     Active Substance: DEXAMETHASONE
     Indication: Product used for unknown indication
     Dosage: HALF AN HOUR BEFORE TREATMENT
     Route: 042
     Dates: start: 20241216
  6. FLUOROURACIL [Concomitant]
     Active Substance: FLUOROURACIL
     Indication: Product used for unknown indication
     Dosage: 4800MG= 99.36%= 2384.64 MG/M2?INFUSOR INF. IN BAG 1000ML PVC IV
     Route: 042
     Dates: start: 20241216

REACTIONS (11)
  - Malaise [Recovering/Resolving]
  - Asthenia [Recovering/Resolving]
  - Vomiting [Recovering/Resolving]
  - Dyspnoea [Recovering/Resolving]
  - Chest pain [Recovering/Resolving]
  - Abdominal pain [Recovering/Resolving]
  - Chest discomfort [Recovering/Resolving]
  - Abdominal discomfort [Recovering/Resolving]
  - Tachycardia [Recovering/Resolving]
  - Oxygen saturation decreased [Recovering/Resolving]
  - Wheezing [Recovering/Resolving]

NARRATIVE: CASE EVENT DATE: 20241216
